FAERS Safety Report 21361358 (Version 1)
Quarter: 2022Q3

REPORT INFORMATION
  Report Type: Spontaneous
  Country: NL (occurrence: NL)
  Receive Date: 20220921
  Receipt Date: 20220921
  Transmission Date: 20221027
  Serious: Yes (Disabling)
  Sender: FDA-Public Use
  Company Number: None

PATIENT
  Sex: Female
  Weight: 60 kg

DRUGS (3)
  1. CIPROFLOXACIN [Suspect]
     Active Substance: CIPROFLOXACIN
     Indication: Pyrexia
     Dosage: 2 X PER DAY 1 PIECE
     Route: 065
     Dates: start: 20220309, end: 20220314
  2. CIPROFLOXACIN [Suspect]
     Active Substance: CIPROFLOXACIN
     Indication: Urinary tract infection
  3. XARELTO [Concomitant]
     Active Substance: RIVAROXABAN
     Dosage: TABLET, 20 MG (MILLIGRAM)
     Route: 065
     Dates: start: 202111

REACTIONS (1)
  - Cerebral haemorrhage [Recovering/Resolving]
